FAERS Safety Report 5007154-7 (Version None)
Quarter: 2006Q1

REPORT INFORMATION
  Report Type: 
  Country: None (occurrence: None)
  Receive Date: 20060327
  Receipt Date: 20060223
  Transmission Date: 20060701
  Serious: Yes (Life-Threatening)
  Sender: FDA-Public Use
  Company Number: 222490

PATIENT
  Age: 54 Year
  Sex: Male
  Weight: 79.4 kg

DRUGS (5)
  1. AVASTIN [Suspect]
     Indication: COLON CANCER
     Dosage: 397 MG, Q2W, INTRAVENOUS
     Route: 042
     Dates: start: 20050930
  2. KYTRIL [Concomitant]
  3. MAGNESIUM SULFATE [Concomitant]
  4. CALCIUM (CALCIUM NOS) [Concomitant]
  5. DECADRON SRC [Concomitant]

REACTIONS (2)
  - INFUSION RELATED REACTION [None]
  - RASH [None]
